FAERS Safety Report 5529276-4 (Version None)
Quarter: 2007Q4

REPORT INFORMATION
  Report Type: 
  Country: None (occurrence: None)
  Receive Date: 20071129
  Receipt Date: 20071108
  Transmission Date: 20080405
  Serious: No
  Sender: FDA-Public Use
  Company Number: A0685092A

PATIENT
  Sex: Female

DRUGS (3)
  1. BUPROPION HCL [Suspect]
     Indication: DEPRESSION
     Dosage: 100MG PER DAY
     Route: 048
     Dates: start: 20061201
  2. ATIVAN [Suspect]
     Indication: ANXIETY
     Route: 065
     Dates: end: 20070601
  3. ZOLOFT [Concomitant]
     Indication: ANXIETY
     Dosage: 100MG UNKNOWN
     Route: 065
     Dates: start: 20070601

REACTIONS (3)
  - CONSTIPATION [None]
  - DEPRESSION [None]
  - DRUG INEFFECTIVE [None]
